FAERS Safety Report 4559249-X (Version None)
Quarter: 2005Q1

REPORT INFORMATION
  Report Type: 
  Country: None (occurrence: None)
  Receive Date: 20050121
  Receipt Date: 20050121
  Transmission Date: 20050727
  Serious: Yes (Hospitalization)
  Sender: FDA-Public Use
  Company Number: None

PATIENT
  Age: 50 Year
  Sex: Male
  Weight: 90.7 kg

DRUGS (6)
  1. VELCADE [Suspect]
     Indication: WALDENSTROM'S MACROGLOBULINAEMIA
     Dosage: 1.3 MG/M2   4 DAYS/ CYCLE   INTRAVENOU
     Route: 042
     Dates: start: 20041119, end: 20050114
  2. PLATELETS [Concomitant]
  3. OXYCONTIN [Concomitant]
  4. OXYCODONE PRN [Concomitant]
  5. CYCLOSPORINE [Concomitant]
  6. ACYCLOVIR [Concomitant]

REACTIONS (5)
  - ATRIAL FIBRILLATION [None]
  - CEREBRAL HAEMORRHAGE [None]
  - HEADACHE [None]
  - LETHARGY [None]
  - VISUAL DISTURBANCE [None]
